FAERS Safety Report 5192508-9 (Version None)
Quarter: 2006Q4

REPORT INFORMATION
  Report Type: 
  Country: None (occurrence: None)
  Receive Date: 20061220
  Receipt Date: 20061211
  Transmission Date: 20070319
  Serious: Yes (Hospitalization)
  Sender: FDA-Public Use
  Company Number: A-CH2006-13819

PATIENT
  Age: 41 Year
  Sex: Female

DRUGS (1)
  1. TRACLEER [Suspect]
     Indication: PULMONARY HYPERTENSION
     Dosage: 125 MG, BID, ORAL;  62.5 MG, BID, ORAL
     Route: 048
     Dates: start: 20061208

REACTIONS (6)
  - DYSPNOEA [None]
  - HYPERVENTILATION [None]
  - METABOLIC ACIDOSIS [None]
  - PLEURAL EFFUSION [None]
  - PO2 INCREASED [None]
  - VIRAL INFECTION [None]
